FAERS Safety Report 12508092 (Version 3)
Quarter: 2017Q4

REPORT INFORMATION
  Report Type: Spontaneous
  Country: US (occurrence: US)
  Receive Date: 20160629
  Receipt Date: 20171228
  Transmission Date: 20180320
  Serious: Yes (Other)
  Sender: FDA-Public Use
  Company Number: US-LUNDBECK-DKLU2013660

PATIENT
  Age: 42 Year
  Sex: Female

DRUGS (2)
  1. NORTHERA [Suspect]
     Active Substance: DROXIDOPA
     Indication: ORTHOSTATIC HYPOTENSION
     Route: 065
     Dates: end: 20170525
  2. NORTHERA [Suspect]
     Active Substance: DROXIDOPA
     Route: 048

REACTIONS (6)
  - Headache [Unknown]
  - Drug dose omission [Recovered/Resolved]
  - Dizziness [Unknown]
  - Dizziness [Unknown]
  - Seizure [Unknown]
  - Nausea [Unknown]

NARRATIVE: CASE EVENT DATE: 201705
